FAERS Safety Report 26101562 (Version 1)
Quarter: 2025Q4

REPORT INFORMATION
  Report Type: Spontaneous
  Country: EU (occurrence: EU)
  Receive Date: 20251128
  Receipt Date: 20251128
  Transmission Date: 20260117
  Serious: Yes (Other)
  Sender: RANBAXY
  Company Number: EU-URPL-DML-MLP.4401.1.2804.2021

PATIENT
  Age: 32 Year
  Sex: Female
  Weight: 50 kg

DRUGS (1)
  1. GEMCITABINE [Suspect]
     Active Substance: GEMCITABINE
     Indication: Soft tissue sarcoma
     Dosage: 962.5 MILLIGRAM
     Route: 042
     Dates: start: 20210301, end: 20210301

REACTIONS (1)
  - Neutropenia [Recovering/Resolving]
